FAERS Safety Report 4428514-9 (Version None)
Quarter: 2004Q3

REPORT INFORMATION
  Report Type: 
  Country: None (occurrence: None)
  Receive Date: 20040817
  Receipt Date: 20040804
  Transmission Date: 20050211
  Serious: Yes (Hospitalization)
  Sender: FDA-Public Use
  Company Number: 2004UW16581

PATIENT
  Age: 76 Year
  Sex: Male
  Weight: 96.6162 kg

DRUGS (7)
  1. CRESTOR [Suspect]
     Dosage: 10 MG QD PO
     Route: 048
     Dates: start: 20040601, end: 20040803
  2. ATENOLOL [Concomitant]
  3. ASPIRIN [Concomitant]
  4. THEO-DUR [Concomitant]
  5. MOTRIN [Concomitant]
  6. FLEXERIL [Concomitant]
  7. TICLID [Concomitant]

REACTIONS (8)
  - ABDOMINAL DISCOMFORT [None]
  - ALANINE AMINOTRANSFERASE INCREASED [None]
  - ASPARTATE AMINOTRANSFERASE INCREASED [None]
  - DYSPEPSIA [None]
  - FATIGUE [None]
  - HEPATIC FUNCTION ABNORMAL [None]
  - JAUNDICE [None]
  - PANCREATIC CARCINOMA [None]
